FAERS Safety Report 7817118-3 (Version None)
Quarter: 2011Q4

REPORT INFORMATION
  Report Type: 
  Country: None (occurrence: None)
  Receive Date: 20111017
  Receipt Date: 20111017
  Transmission Date: 20120403
  Serious: Yes (Hospitalization)
  Sender: FDA-Public Use
  Company Number: None

PATIENT
  Age: 11 Year
  Sex: Male
  Weight: 51.2 kg

DRUGS (1)
  1. PRIVIGEN [Suspect]
     Indication: DERMATOMYOSITIS
     Dosage: 50 G DAILY
     Route: 042
     Dates: start: 20110831, end: 20110901

REACTIONS (4)
  - VOMITING [None]
  - MENINGITIS ASEPTIC [None]
  - HEADACHE [None]
  - MUSCULOSKELETAL STIFFNESS [None]
